FAERS Safety Report 22613281 (Version 3)
Quarter: 2023Q4

REPORT INFORMATION
  Report Type: Spontaneous
  Country: US (occurrence: US)
  Receive Date: 20230619
  Receipt Date: 20231107
  Transmission Date: 20240110
  Serious: No
  Sender: FDA-Public Use
  Company Number: US-PFIZER INC-PV202300105929

PATIENT
  Age: 88 Year
  Sex: Male
  Weight: 112.01 kg

DRUGS (1)
  1. TIKOSYN [Suspect]
     Active Substance: DOFETILIDE
     Indication: Cardiac disorder
     Dosage: 500 UG, 2X/DAY
     Dates: start: 20230606

REACTIONS (1)
  - Hypoacusis [Unknown]
